FAERS Safety Report 7355146-5 (Version None)
Quarter: 2011Q1

REPORT INFORMATION
  Report Type: 
  Country: None (occurrence: None)
  Receive Date: 20110307
  Receipt Date: 20100405
  Transmission Date: 20110831
  Serious: No
  Sender: FDA-Public Use
  Company Number: AEUSA201000106

PATIENT
  Age: 38 Year
  Sex: Female

DRUGS (3)
  1. ADVAIR DISKUS 100/50 [Concomitant]
  2. IBUPROFEN [Concomitant]
  3. PROLASTIN-C [Suspect]
     Indication: ALPHA-1 ANTI-TRYPSIN DEFICIENCY
     Dosage: 60 MG/KG;QW;IV

REACTIONS (1)
  - MYALGIA [None]
